FAERS Safety Report 18079723 (Version 1)
Quarter: 2020Q3

REPORT INFORMATION
  Report Type: Spontaneous
  Country: US (occurrence: US)
  Receive Date: 20200728
  Receipt Date: 20200728
  Transmission Date: 20201103
  Serious: No
  Sender: FDA-Public Use
  Company Number: None

PATIENT
  Age: 61 Year
  Sex: Female
  Weight: 76.5 kg

DRUGS (3)
  1. CELEXA [Concomitant]
     Active Substance: CITALOPRAM HYDROBROMIDE
  2. EMGALITY [Suspect]
     Active Substance: GALCANEZUMAB-GNLM
     Indication: MIGRAINE
     Dates: start: 20200326, end: 20200727
  3. MULTIPLE VITAMIN [Concomitant]
     Active Substance: VITAMINS

REACTIONS (9)
  - Arthralgia [None]
  - Pain [None]
  - Flat affect [None]
  - Memory impairment [None]
  - Insomnia [None]
  - Staring [None]
  - Nausea [None]
  - Feeling abnormal [None]
  - Anxiety [None]

NARRATIVE: CASE EVENT DATE: 20200626
